FAERS Safety Report 5583637-6 (Version None)
Quarter: 2008Q1

REPORT INFORMATION
  Report Type: 
  Country: None (occurrence: None)
  Receive Date: 20080107
  Receipt Date: 20071228
  Transmission Date: 20080703
  Serious: Yes (Hospitalization)
  Sender: FDA-Public Use
  Company Number: CN-ABBOTT-07P-035-0431685-00

PATIENT
  Age: 34 Month
  Sex: Female

DRUGS (1)
  1. DEPAKENE [Suspect]
     Indication: FEBRILE CONVULSION
     Route: 048
     Dates: start: 20070907, end: 20071208

REACTIONS (3)
  - ABDOMINAL PAIN UPPER [None]
  - PANCREATITIS ACUTE [None]
  - URINE AMYLASE INCREASED [None]
